FAERS Safety Report 4920380-8 (Version None)
Quarter: 2006Q1

REPORT INFORMATION
  Report Type: 
  Country: None (occurrence: None)
  Receive Date: 20060216
  Receipt Date: 20060203
  Transmission Date: 20060701
  Serious: Yes (Hospitalization)
  Sender: FDA-Public Use
  Company Number: 2006019518

PATIENT
  Age: 46 Year
  Sex: Male

DRUGS (1)
  1. IRINOTECAN HCL [Suspect]
     Indication: COLON CANCER
     Dosage: INTRAVENOUS
     Route: 042

REACTIONS (3)
  - COORDINATION ABNORMAL [None]
  - DYSARTHRIA [None]
  - TACHYPHYLAXIS [None]
